FAERS Safety Report 14848763 (Version 1)
Quarter: 2018Q2

REPORT INFORMATION
  Report Type: Spontaneous
  Country: US (occurrence: US)
  Receive Date: 20180504
  Receipt Date: 20180504
  Transmission Date: 20180711
  Serious: No
  Sender: FDA-Public Use
  Company Number: US-LUNDBECK-DKLU2047107

PATIENT
  Sex: Male

DRUGS (3)
  1. BANZEL [Concomitant]
     Active Substance: RUFINAMIDE
     Indication: SEIZURE
     Route: 065
  2. TIZANIDINE HCL [Suspect]
     Active Substance: TIZANIDINE HYDROCHLORIDE
     Indication: DYSTONIA
     Route: 065
  3. ONFI [Suspect]
     Active Substance: CLOBAZAM
     Indication: SLEEP DISORDER
     Route: 065

REACTIONS (2)
  - Screaming [Unknown]
  - Crying [Unknown]
